FAERS Safety Report 6218807-7 (Version None)
Quarter: 2009Q2

REPORT INFORMATION
  Report Type: 
  Country: None (occurrence: None)
  Receive Date: 20090608
  Receipt Date: 20090525
  Transmission Date: 20091009
  Serious: Yes (Hospitalization, Other)
  Sender: FDA-Public Use
  Company Number: SE-ELI_LILLY_AND_COMPANY-SE200905005954

PATIENT
  Age: 38 Year
  Sex: Male

DRUGS (7)
  1. ZYPREXA [Suspect]
     Dosage: 10 MG, DAILY (1/D)
     Route: 048
     Dates: start: 20021203, end: 20030108
  2. NOZINAN [Concomitant]
     Dosage: 100 MG, DAILY (1/D)
     Dates: start: 20000818
  3. PULMICORT-100 [Concomitant]
  4. CIPRAMIL [Concomitant]
  5. SOBRIL [Concomitant]
  6. FLUNITRAZEPAM [Concomitant]
  7. REMERON [Concomitant]

REACTIONS (15)
  - AGITATION [None]
  - ANXIETY [None]
  - BLUNTED AFFECT [None]
  - FALL [None]
  - FATIGUE [None]
  - GASTRIC DISORDER [None]
  - HYPERHIDROSIS [None]
  - MUSCLE RIGIDITY [None]
  - NEUROLEPTIC MALIGNANT SYNDROME [None]
  - PYREXIA [None]
  - SINUS TACHYCARDIA [None]
  - SOCIAL AVOIDANT BEHAVIOUR [None]
  - SOMNOLENCE [None]
  - TREMOR [None]
  - WEIGHT INCREASED [None]
